FAERS Safety Report 13386113 (Version 4)
Quarter: 2018Q4

REPORT INFORMATION
  Report Type: Report from Study
  Country: US (occurrence: US)
  Receive Date: 20170330
  Receipt Date: 20181013
  Transmission Date: 20190204
  Serious: Yes (Other)
  Sender: FDA-Public Use
  Company Number: PHEH2017US009287

PATIENT
  Sex: Male
  Weight: 108.84 kg

DRUGS (2)
  1. NEURONTIN [Concomitant]
     Active Substance: GABAPENTIN
     Indication: PRODUCT USED FOR UNKNOWN INDICATION
     Dosage: 100 MG, UNK
     Route: 065
  2. GILENYA [Suspect]
     Active Substance: FINGOLIMOD HYDROCHLORIDE
     Indication: MULTIPLE SCLEROSIS
     Dosage: 0.5 MG, QD
     Route: 048
     Dates: start: 20101201

REACTIONS (4)
  - Multiple sclerosis relapse [Unknown]
  - Trigeminal neuralgia [Unknown]
  - Inflammation [Unknown]
  - Hypoaesthesia [Unknown]
